FAERS Safety Report 20315953 (Version 3)
Quarter: 2022Q1

REPORT INFORMATION
  Report Type: Report from Study
  Country: US (occurrence: US)
  Receive Date: 20220110
  Receipt Date: 20220117
  Transmission Date: 20220424
  Serious: Yes (Hospitalization)
  Sender: FDA-Public Use
  Company Number: US-NOVARTISTESTPH-NVSC2022US003180

PATIENT
  Sex: Female

DRUGS (1)
  1. PIQRAY [Suspect]
     Active Substance: ALPELISIB
     Indication: Breast cancer metastatic
     Dosage: 300 MG, QD (STARTED 3-4 WEEKS AGO, IN THE AM)
     Route: 048

REACTIONS (6)
  - Cerebrovascular accident [Unknown]
  - Gallbladder disorder [Unknown]
  - Urinary tract infection [Unknown]
  - Alopecia [Unknown]
  - Nausea [Unknown]
  - Blood glucose abnormal [Unknown]
